FAERS Safety Report 10561381 (Version 1)
Quarter: 2014Q4

REPORT INFORMATION
  Report Type: Spontaneous
  Country: US (occurrence: US)
  Receive Date: 20141103
  Receipt Date: 20141103
  Transmission Date: 20150529
  Serious: Yes (Hospitalization, Other)
  Sender: FDA-Public Use
  Company Number: US-TEVA-518956USA

PATIENT
  Sex: Female
  Weight: 76.27 kg

DRUGS (9)
  1. SERTRALINE [Suspect]
     Active Substance: SERTRALINE HYDROCHLORIDE
     Route: 065
  2. LISINOPRIL. [Concomitant]
     Active Substance: LISINOPRIL
     Indication: HYPERTENSION
     Dosage: .5 MILLIGRAM DAILY;
  3. EFFEXOR [Suspect]
     Active Substance: VENLAFAXINE HYDROCHLORIDE
     Indication: ANXIETY
  4. CLONAZEPAM. [Concomitant]
     Active Substance: CLONAZEPAM
     Indication: ANXIETY
  5. EFFEXOR [Suspect]
     Active Substance: VENLAFAXINE HYDROCHLORIDE
     Indication: DEPRESSION
     Route: 065
  6. CLONAZEPAM. [Concomitant]
     Active Substance: CLONAZEPAM
     Indication: DEPRESSION
  7. ZOLOFT [Concomitant]
     Active Substance: SERTRALINE HYDROCHLORIDE
     Dosage: 100MG IN MORNING AND 50 MG AT NIGHT
  8. GABITRIL [Suspect]
     Active Substance: TIAGABINE HYDROCHLORIDE
     Route: 065
  9. CODEINE [Suspect]
     Active Substance: CODEINE
     Indication: PAIN
     Route: 065

REACTIONS (12)
  - Adverse drug reaction [Unknown]
  - Dysarthria [Unknown]
  - Movement disorder [Unknown]
  - Feeling drunk [Unknown]
  - Adverse event [Unknown]
  - Abasia [Unknown]
  - Disturbance in attention [Unknown]
  - Malaise [Unknown]
  - Drug screen positive [Unknown]
  - Feeling abnormal [Unknown]
  - Drug hypersensitivity [Unknown]
  - Hypertension [Unknown]
